FAERS Safety Report 11319661 (Version 1)
Quarter: 2015Q3

REPORT INFORMATION
  Report Type: Spontaneous
  Country: TR (occurrence: None)
  Receive Date: 20150727
  Receipt Date: 20150727
  Transmission Date: 20151125
  Serious: Yes (Life-Threatening, Hospitalization)
  Sender: FDA-Public Use
  Company Number: NSR_02179_2015

PATIENT
  Age: 21 Year
  Sex: Female

DRUGS (2)
  1. PROPRANOLOL [Suspect]
     Active Substance: PROPRANOLOL\PROPRANOLOL HYDROCHLORIDE
     Indication: PRODUCT USED FOR UNKNOWN INDICATION
     Dosage: NOT THE PRESCRIBED AMOUNT
  2. FERROGLYCINE SULFATE COMPLEX [Suspect]
     Active Substance: FERROGLYCINE SULFATE
     Indication: PRODUCT USED FOR UNKNOWN INDICATION
     Dosage: NOT THE PRESCRIBED AMOUNT

REACTIONS (10)
  - Peripheral coldness [None]
  - Cardiogenic shock [None]
  - Sinus bradycardia [None]
  - Toxicity to various agents [None]
  - Suicidal ideation [None]
  - Hypotension [None]
  - Blood pressure decreased [None]
  - Overdose [None]
  - Pallor [None]
  - Anuria [None]
